FAERS Safety Report 6870528-3 (Version None)
Quarter: 2010Q3

REPORT INFORMATION
  Report Type: 
  Country: None (occurrence: None)
  Receive Date: 20100723
  Receipt Date: 20100714
  Transmission Date: 20110219
  Serious: No
  Sender: FDA-Public Use
  Company Number: 2008BI031020

PATIENT
  Age: 59 Year
  Sex: Female

DRUGS (1)
  1. TYSABRI [Suspect]
     Indication: MULTIPLE SCLEROSIS
     Route: 042
     Dates: start: 20081114

REACTIONS (10)
  - ARTHRALGIA [None]
  - CONJUNCTIVITIS INFECTIVE [None]
  - COUGH [None]
  - JOINT EFFUSION [None]
  - JOINT INJURY [None]
  - LUNG INFECTION [None]
  - PAIN IN EXTREMITY [None]
  - RASH PRURITIC [None]
  - RESPIRATORY TRACT CONGESTION [None]
  - SCIATICA [None]
